FAERS Safety Report 9931703 (Version 1)
Quarter: 2014Q1

REPORT INFORMATION
  Report Type: Spontaneous
  Country: US (occurrence: US)
  Receive Date: 20140228
  Receipt Date: 20140228
  Transmission Date: 20141002
  Serious: Yes (Death, Other)
  Sender: FDA-Public Use
  Company Number: US-JNJFOC-20140212158

PATIENT
  Sex: 0

DRUGS (5)
  1. DOXORUBICIN [Suspect]
     Indication: NEUROBLASTOMA
     Route: 042
  2. CYCLOPHOSPHAMIDE [Suspect]
     Indication: NEUROBLASTOMA
     Dosage: 140 MG/KG/CYCLE IN PATIENTS UP TO 10 YEARS OF AGE
     Route: 065
  3. CISPLATIN [Suspect]
     Indication: NEUROBLASTOMA
     Route: 065
  4. ETOPOSIDE [Suspect]
     Indication: NEUROBLASTOMA
     Route: 065
  5. VINCRISTINE [Suspect]
     Indication: NEUROBLASTOMA
     Dosage: CYCLES 1, 2, 4, 6, 8
     Route: 065

REACTIONS (5)
  - Death [Fatal]
  - Leukaemia [Unknown]
  - Myelodysplastic syndrome [Unknown]
  - Neuroblastoma [Unknown]
  - Off label use [Unknown]
